FAERS Safety Report 15093195 (Version 8)
Quarter: 2019Q1

REPORT INFORMATION
  Report Type: Report from Study
  Country: AU (occurrence: AU)
  Receive Date: 20180629
  Receipt Date: 20190115
  Transmission Date: 20190417
  Serious: Yes (Death, Life-Threatening, Hospitalization)
  Sender: FDA-Public Use
  Company Number: AU-EISAI MEDICAL RESEARCH-EC-2018-037421

PATIENT
  Age: 77 Year
  Sex: Female
  Weight: 63.7 kg

DRUGS (36)
  1. LENVATINIB [Suspect]
     Active Substance: LENVATINIB
     Dosage: UNKNOWN
     Route: 048
     Dates: start: 20180802, end: 20180823
  2. EVEROLIMUS. [Suspect]
     Active Substance: EVEROLIMUS
     Indication: RENAL CELL CARCINOMA
     Route: 048
     Dates: start: 20180228, end: 20180321
  3. NORVASC [Concomitant]
     Active Substance: AMLODIPINE BESYLATE
  4. PERINDORAL [Concomitant]
  5. MACROGOL [Concomitant]
     Active Substance: POLYETHYLENE GLYCOLS
  6. PARACETAMOL [Concomitant]
     Active Substance: ACETAMINOPHEN
  7. RANITIDINE. [Concomitant]
     Active Substance: RANITIDINE
  8. SODIUM BICARBONATE. [Concomitant]
     Active Substance: SODIUM BICARBONATE
  9. FENTANYL TRANSDERMAL SYSTEM [Concomitant]
     Active Substance: FENTANYL
  10. DILAUDID [Concomitant]
     Active Substance: HYDROMORPHONE HYDROCHLORIDE
  11. LENVATINIB [Suspect]
     Active Substance: LENVATINIB
     Route: 048
     Dates: start: 2018, end: 20180620
  12. EVEROLIMUS. [Suspect]
     Active Substance: EVEROLIMUS
     Dosage: UNKNOWN
     Route: 048
     Dates: start: 20180802, end: 20180823
  13. DEXAMETHASONE. [Concomitant]
     Active Substance: DEXAMETHASONE
  14. CYCLIZINE [Concomitant]
     Active Substance: CYCLIZINE
  15. DOCUSATE-SENNA [Concomitant]
  16. TRAMADOL. [Concomitant]
     Active Substance: TRAMADOL
  17. MS CONTIN [Concomitant]
     Active Substance: MORPHINE SULFATE
  18. FRUSEMIDE [Concomitant]
     Active Substance: FUROSEMIDE
  19. COLECALCIFEROL [Concomitant]
     Active Substance: CHOLECALCIFEROL
  20. EVEROLIMUS. [Suspect]
     Active Substance: EVEROLIMUS
     Route: 048
     Dates: start: 2018, end: 20180620
  21. EVEROLIMUS. [Suspect]
     Active Substance: EVEROLIMUS
     Route: 048
     Dates: start: 2018, end: 20180727
  22. NEBIVOLOL. [Concomitant]
     Active Substance: NEBIVOLOL
  23. PANTOPRAZOLE [Concomitant]
     Active Substance: PANTOPRAZOLE
  24. PREDNISONE. [Concomitant]
     Active Substance: PREDNISONE
  25. SOMAC [Concomitant]
     Active Substance: PANTOPRAZOLE SODIUM
  26. BUSCOPAN FORTE [Concomitant]
  27. AMLODIPINE [Concomitant]
     Active Substance: AMLODIPINE BESYLATE
  28. MAGNESIUM [Concomitant]
     Active Substance: MAGNESIUM
  29. METOCLOPRAMIDE. [Concomitant]
     Active Substance: METOCLOPRAMIDE
  30. LENVATINIB [Suspect]
     Active Substance: LENVATINIB
     Indication: RENAL CELL CARCINOMA
     Route: 048
     Dates: start: 20180228, end: 20180321
  31. LENVATINIB [Suspect]
     Active Substance: LENVATINIB
     Route: 048
     Dates: start: 2018, end: 20180727
  32. GASTROSTOP [Concomitant]
  33. BIOTENE NOS [Concomitant]
     Active Substance: CETYLPYRIDINIUM CHLORIDE OR SODIUM FLUORIDE OR SODIUM MONOFLUOROPHOSPHATE OR GLUCOSE OXIDASE\LACTOFERRIN\LACTOPEROXIDASE BOVINE\LYSOZYME
  34. ATORVASTATIN [Concomitant]
     Active Substance: ATORVASTATIN
  35. ENOXAPARIN [Concomitant]
     Active Substance: ENOXAPARIN
  36. ONDASETRON [Concomitant]
     Active Substance: ONDANSETRON

REACTIONS (5)
  - Malignant neoplasm progression [Fatal]
  - Nausea [Not Recovered/Not Resolved]
  - Acute kidney injury [Recovered/Resolved]
  - Pyelonephritis [Recovered/Resolved]
  - Pneumonia [Recovered/Resolved]

NARRATIVE: CASE EVENT DATE: 20180325
